FAERS Safety Report 9070258 (Version 2)
Quarter: 2013Q1

REPORT INFORMATION
  Report Type: Spontaneous
  Country: JP (occurrence: JP)
  Receive Date: 20130129
  Receipt Date: 20130219
  Transmission Date: 20140127
  Serious: Yes (Life-Threatening, Other)
  Sender: FDA-Public Use
  Company Number: JP-BAYER-2013-010315

PATIENT
  Age: 52 Year
  Sex: Male

DRUGS (20)
  1. BAYASPIRIN [Suspect]
     Indication: THROMBOSIS PROPHYLAXIS
     Dosage: 100 MG, OM
     Route: 048
     Dates: end: 20130121
  2. BAYASPIRIN [Suspect]
     Indication: THROMBOSIS PROPHYLAXIS
     Dosage: UNK
  3. AMLODIPINE [Suspect]
     Indication: HYPERTENSION
     Dosage: 5 MG, UNK
     Route: 048
     Dates: start: 20121031, end: 20130121
  4. WYTENSIN [Suspect]
     Indication: HYPERTENSION
     Dosage: 4 MG, UNK
     Route: 048
     Dates: end: 20121202
  5. WYTENSIN [Suspect]
     Indication: HYPERTENSION
     Dosage: 4 MG, BID
     Route: 048
     Dates: start: 20121203, end: 20130121
  6. CINACALCET [Suspect]
     Indication: HYPERPARATHYROIDISM SECONDARY
     Dosage: 75 MG, UNK
     Route: 048
     Dates: start: 20080723, end: 20121127
  7. CINACALCET [Suspect]
     Indication: HYPERPARATHYROIDISM SECONDARY
     Dosage: 100 MG, UNK
     Dates: start: 20121128, end: 20130111
  8. PROTECADIN [Suspect]
     Indication: GASTRIC ULCER
     Dosage: 10 MG, BID
     Route: 048
     Dates: start: 20100908, end: 20130121
  9. ALLOPURINOL [Suspect]
     Indication: HYPERURICAEMIA
     Dosage: 100 MG, TIW
     Route: 048
     Dates: end: 20130121
  10. OLMETEC [Suspect]
     Indication: HYPERTENSION
     Dosage: 40 MG, HS
     Route: 048
     Dates: start: 20120123, end: 20130121
  11. ARTIST [Suspect]
     Indication: HYPERTENSION
     Dosage: 2.5 MG, BID
     Route: 048
     Dates: start: 20110822, end: 20130111
  12. CORINAEL [Suspect]
     Indication: HYPERTENSION
     Dosage: 90 MG, QID
     Route: 048
     Dates: start: 20110822, end: 20130121
  13. CALCIUM CARBONATE [Concomitant]
     Indication: HYPERPHOSPHATAEMIA
     Dosage: 500 MG, TID
     Route: 048
     Dates: start: 20130121
  14. FOSRENOL [Concomitant]
     Indication: HYPERPHOSPHATAEMIA
     Dosage: 750 MG, TID
     Route: 048
     Dates: start: 20090724, end: 20130121
  15. CHOLEBINE [Concomitant]
     Indication: HYPERLIPIDAEMIA
     Dosage: 1000 MG, BID
     Route: 048
     Dates: start: 20050518, end: 20130121
  16. ARGAMATE [Concomitant]
     Indication: RENAL FAILURE CHRONIC
     Dosage: UNK
     Route: 048
     Dates: start: 20070523, end: 20130121
  17. RENAGEL [SEVELAMER] [Concomitant]
     Indication: HYPERPHOSPHATAEMIA
     Dosage: 1500 MG, OM
     Route: 048
     Dates: start: 20030903, end: 20130121
  18. ALLEGRA [Concomitant]
     Indication: RASH
     Dosage: UNK
     Route: 048
  19. OXAROL [Concomitant]
     Dosage: 2.500 ?G, TIW
     Dates: start: 20030123, end: 20130121
  20. MIRCERA [Concomitant]
     Indication: RENAL FAILURE CHRONIC
     Dosage: 150 ?G, Q1MON
     Dates: start: 20111212, end: 20130121

REACTIONS (3)
  - Thrombocytopenia [Recovering/Resolving]
  - Hepatitis cholestatic [Recovered/Resolved]
  - Eosinophilia [Recovered/Resolved]
